FAERS Safety Report 17099071 (Version 1)
Quarter: 2019Q4

REPORT INFORMATION
  Report Type: Spontaneous
  Country: US (occurrence: US)
  Receive Date: 20191202
  Receipt Date: 20191202
  Transmission Date: 20200122
  Serious: Yes (Hospitalization, Other)
  Sender: FDA-Public Use
  Company Number: US-UNITED THERAPEUTICS-UNT-2019-019236

PATIENT
  Age: 51 Year
  Sex: Female
  Weight: 82.86 kg

DRUGS (3)
  1. LASIX [Concomitant]
     Active Substance: FUROSEMIDE
     Indication: PRODUCT USED FOR UNKNOWN INDICATION
     Route: 065
  2. IBUPROFEN. [Suspect]
     Active Substance: IBUPROFEN
     Indication: PRODUCT USED FOR UNKNOWN INDICATION
     Dosage: UNK
     Route: 065
  3. REMODULIN [Suspect]
     Active Substance: TREPROSTINIL
     Indication: PULMONARY ARTERIAL HYPERTENSION
     Dosage: 0.1 ?G/KG, CONTINUING
     Route: 058
     Dates: start: 20190624

REACTIONS (35)
  - Staphylococcal infection [Unknown]
  - Fluid overload [Unknown]
  - Sepsis [Unknown]
  - Pleural effusion [Unknown]
  - Hypokalaemia [Unknown]
  - Cough [Unknown]
  - Abdominal pain [Unknown]
  - Infusion site infection [Unknown]
  - Deafness unilateral [Unknown]
  - Headache [Unknown]
  - Myalgia [Unknown]
  - Urine output decreased [Unknown]
  - Palpitations [Unknown]
  - Vomiting [Unknown]
  - Dyspnoea [Unknown]
  - Hypoaesthesia [Unknown]
  - Hepatomegaly [Unknown]
  - Leukocytosis [Unknown]
  - Ascites [Unknown]
  - Weight increased [Unknown]
  - Night sweats [Unknown]
  - Splenomegaly [Unknown]
  - Lung disorder [Unknown]
  - Constipation [Unknown]
  - Haematochezia [Unknown]
  - Pericardial effusion [Unknown]
  - Malaise [Unknown]
  - Oedema peripheral [Unknown]
  - Abdominal distension [Unknown]
  - Cardiac failure acute [Unknown]
  - Hypoxia [Unknown]
  - Thrombocytopenia [Unknown]
  - Syncope [Unknown]
  - Pruritus [Unknown]
  - Asthenia [Unknown]

NARRATIVE: CASE EVENT DATE: 2019
